FAERS Safety Report 7428579-6 (Version None)
Quarter: 2011Q2

REPORT INFORMATION
  Report Type: 
  Country: None (occurrence: None)
  Receive Date: 20110421
  Receipt Date: 20100124
  Transmission Date: 20111010
  Serious: Yes (Hospitalization, Other)
  Sender: FDA-Public Use
  Company Number: US-BAYER-201012140NA

PATIENT
  Age: 53 Year
  Sex: Female
  Weight: 72.562 kg

DRUGS (19)
  1. AMOXICILLIN [Concomitant]
     Dosage: 500 MG, UNK
  2. PACKED RED BLOOD CELLS [Concomitant]
     Dosage: 2 U, UNK
     Dates: start: 20030519
  3. TRASYLOL [Suspect]
     Indication: CORONARY ARTERY BYPASS
     Route: 042
     Dates: start: 20030519
  4. ACETAMINOPHEN AND HYDROCODONE BITARTRATE [Concomitant]
     Dosage: 7.5-750
  5. LASIX [Concomitant]
     Dosage: AS NEEDED
  6. VANCOMYCIN [Concomitant]
  7. HEPARIN [Concomitant]
     Dosage: 10000 U, CPB
     Dates: start: 20030519, end: 20030519
  8. AMOXICILLIN AND CLAVULANATE POTASSIUM [Concomitant]
     Dosage: 875-125 MG
  9. ACETYLSALICYLIC ACID SRT [Concomitant]
     Dosage: 325 MG, UNK
  10. PROPOFOL [Concomitant]
  11. OMNICEF [Concomitant]
     Dosage: 300 MG, UNK
  12. NIASPAN [Concomitant]
     Dosage: 500 MG, HS
  13. NITROGLYCERIN [Concomitant]
  14. MANNITOL [Concomitant]
     Dosage: 12.5 G, CARDIOPULMONARY BYPASS (CPB)
     Dates: start: 20030519, end: 20030519
  15. LISINOPRIL [Concomitant]
     Dosage: 5 UNK, UNK
  16. ZETIA [Concomitant]
     Dosage: 10 MG, UNK
  17. ALBUMIN (HUMAN) [Concomitant]
     Dosage: 12.5 G, CPB
     Dates: start: 20030519, end: 20030519
  18. TOPROL-XL [Concomitant]
     Dosage: 50 MG, UNK
  19. FENTANYL [Concomitant]

REACTIONS (14)
  - ENCEPHALOPATHY [None]
  - RENAL IMPAIRMENT [None]
  - STRESS [None]
  - UNEVALUABLE EVENT [None]
  - RENAL INJURY [None]
  - EMOTIONAL DISTRESS [None]
  - FEAR [None]
  - PAIN [None]
  - ANXIETY [None]
  - INJURY [None]
  - MULTI-ORGAN FAILURE [None]
  - CARDIAC FAILURE [None]
  - RENAL FAILURE [None]
  - ANHEDONIA [None]
